FAERS Safety Report 5874962-X (Version None)
Quarter: 2008Q3

REPORT INFORMATION
  Report Type: 
  Country: None (occurrence: None)
  Receive Date: 20080908
  Receipt Date: 20080908
  Transmission Date: 20090109
  Serious: Yes (Hospitalization, Other)
  Sender: FDA-Public Use
  Company Number: None

PATIENT
  Age: 19 Year
  Sex: Male
  Weight: 77.1115 kg

DRUGS (1)
  1. LOXAPINE [Suspect]
     Indication: ASPERGER'S DISORDER
     Dosage: 25 MG BID PO
     Route: 048
     Dates: start: 20080905, end: 20080906

REACTIONS (4)
  - DYSKINESIA [None]
  - ILL-DEFINED DISORDER [None]
  - JAW DISORDER [None]
  - SPEECH DISORDER [None]
